FAERS Safety Report 7767412-X (Version None)
Quarter: 2011Q3

REPORT INFORMATION
  Report Type: 
  Country: None (occurrence: None)
  Receive Date: 20110922
  Receipt Date: 20110427
  Transmission Date: 20111222
  Serious: No
  Sender: FDA-Public Use
  Company Number: US-ASTRAZENECA-2011SE24228

PATIENT

DRUGS (2)
  1. LITHIUM CARBONATE [Suspect]
     Route: 065
  2. SEROQUEL [Suspect]
     Route: 048

REACTIONS (1)
  - ADVERSE EVENT [None]
